FAERS Safety Report 16956175 (Version 4)
Quarter: 2025Q2

REPORT INFORMATION
  Report Type: Spontaneous
  Country: DE (occurrence: DE)
  Receive Date: 20191024
  Receipt Date: 20250419
  Transmission Date: 20250717
  Serious: Yes (Hospitalization, Other)
  Sender: LUPIN
  Company Number: None

PATIENT
  Age: 89 Year
  Sex: Female

DRUGS (18)
  1. QUETIAPINE FUMARATE [Suspect]
     Active Substance: QUETIAPINE FUMARATE
     Indication: Depression
     Route: 065
  2. LORAZEPAM [Suspect]
     Active Substance: LORAZEPAM
     Indication: Depression
     Route: 065
  3. MIRTAZAPINE [Interacting]
     Active Substance: MIRTAZAPINE
     Indication: Depression
     Route: 065
  4. CITALOPRAM [Interacting]
     Active Substance: CITALOPRAM
     Indication: Depression
     Route: 065
  5. MEPERIDINE [Interacting]
     Active Substance: MEPERIDINE
     Indication: Pain
     Route: 065
  6. NOVALGIN (METAMIZOLE SODIUM) [Suspect]
     Active Substance: METAMIZOLE SODIUM
     Indication: Pain
  7. DIPYRONE [Suspect]
     Active Substance: DIPYRONE
     Indication: Pain
  8. OXYCONTIN [Interacting]
     Active Substance: OXYCODONE HYDROCHLORIDE
     Indication: Pain
     Route: 065
  9. TOLPERISONE HYDROCHLORIDE [Interacting]
     Active Substance: TOLPERISONE HYDROCHLORIDE
     Indication: Pain
  10. ACETAMINOPHEN [Suspect]
     Active Substance: ACETAMINOPHEN
     Indication: Pain
     Route: 065
  11. MEPERIDINE HYDROCHLORIDE [Suspect]
     Active Substance: MEPERIDINE HYDROCHLORIDE
     Indication: Pain
  12. CEFEPIME [Concomitant]
     Active Substance: CEFEPIME HYDROCHLORIDE
     Indication: Product used for unknown indication
     Dosage: UNK UNK, BID (DOSE WAS ADJUSTED)
  13. DIAZEPAM [Concomitant]
     Active Substance: DIAZEPAM
     Indication: Product used for unknown indication
  14. DAFALGAN [Concomitant]
     Active Substance: ACETAMINOPHEN
     Indication: Pain
  15. FOSFOMYCIN TROMETHAMINE [Concomitant]
     Active Substance: FOSFOMYCIN TROMETHAMINE
     Indication: Escherichia infection
     Dosage: 3 GRAM, SINGLE, SINGLE DOSE OF 3 G
     Route: 065
  16. FENTANYL [Concomitant]
     Active Substance: FENTANYL
     Indication: Pain
     Route: 065
  17. Magnesium;Potassium [Concomitant]
     Indication: Hypokalaemia
     Route: 065
  18. HALOPERIDOL [Concomitant]
     Active Substance: HALOPERIDOL
     Indication: Product used for unknown indication
     Route: 065

REACTIONS (9)
  - Serotonin syndrome [Recovered/Resolved]
  - Hallucination [Recovering/Resolving]
  - Pelvic fracture [Recovering/Resolving]
  - Delirium [Recovering/Resolving]
  - Respiratory alkalosis [Recovering/Resolving]
  - Hypertension [Recovering/Resolving]
  - Diarrhoea [Recovering/Resolving]
  - Fall [Recovered/Resolved]
  - Drug interaction [Unknown]

NARRATIVE: CASE EVENT DATE: 20150101
